FAERS Safety Report 17025318 (Version 1)
Quarter: 2019Q4

REPORT INFORMATION
  Report Type: Spontaneous
  Country: US (occurrence: US)
  Receive Date: 20191008
  Receipt Date: 20191008
  Transmission Date: 20200122
  Serious: Yes (Life-Threatening, Hospitalization, Disabling, Other)
  Sender: FDA-Public Use
  Company Number: None

PATIENT
  Age: 62 Year
  Sex: Female
  Weight: 86.64 kg

DRUGS (25)
  1. NASONEX [Concomitant]
     Active Substance: MOMETASONE FUROATE
  2. GLUCOSE CONTOL BOOST [Concomitant]
  3. MENOPAUSE MED [Concomitant]
  4. NORVACE [Concomitant]
  5. C-PAP MACHINE [Concomitant]
     Active Substance: DEVICE
  6. TRISABA [Concomitant]
  7. CLARITIN [Concomitant]
     Active Substance: LORATADINE
  8. VICTOZA [Suspect]
     Active Substance: LIRAGLUTIDE
     Indication: TYPE 2 DIABETES MELLITUS
     Dosage: ?          OTHER FREQUENCY:TAKE Q 24 HRS;?
     Route: 058
     Dates: start: 2017, end: 2017
  9. ALLEGRA [Concomitant]
     Active Substance: FEXOFENADINE HYDROCHLORIDE
  10. TRAZODONE [Concomitant]
     Active Substance: TRAZODONE HYDROCHLORIDE
  11. TYLENOL- 500MG [Concomitant]
  12. BENADRYL [Concomitant]
     Active Substance: DIPHENHYDRAMINE HYDROCHLORIDE
  13. APRESOLINE HYDROCHLORIDE [Concomitant]
     Active Substance: HYDRALAZINE HYDROCHLORIDE
  14. ZOLPIDEM [Concomitant]
     Active Substance: ZOLPIDEM TARTRATE
  15. IBGARD [Concomitant]
  16. ALBUTEROL. [Concomitant]
     Active Substance: ALBUTEROL
  17. EDARBI [Concomitant]
     Active Substance: AZILSARTAN KAMEDOXOMIL
  18. CRESTRIOL [Concomitant]
  19. SYMBICORT [Concomitant]
     Active Substance: BUDESONIDE\FORMOTEROL FUMARATE DIHYDRATE
  20. PHENOBARBITALL [Concomitant]
  21. VIT B12 INJECTIONS [Concomitant]
  22. NEURONTIN [Concomitant]
     Active Substance: GABAPENTIN
  23. SINGULAIR [Concomitant]
     Active Substance: MONTELUKAST SODIUM
  24. VITAMIN D3 [Concomitant]
     Active Substance: CHOLECALCIFEROL
  25. VITAMIN C [Concomitant]
     Active Substance: ASCORBIC ACID

REACTIONS (3)
  - Abdominal pain upper [None]
  - Colitis [None]
  - Pancreatitis acute [None]
